FAERS Safety Report 4861601-X (Version None)
Quarter: 2005Q4

REPORT INFORMATION
  Report Type: 
  Country: None (occurrence: None)
  Receive Date: 20051129
  Receipt Date: 20051017
  Transmission Date: 20060501
  Serious: Yes (Hospitalization)
  Sender: FDA-Public Use
  Company Number: WAES 0510USA07586

PATIENT
  Age: 72 Year
  Sex: Male

DRUGS (1)
  1. VYTORIN [Suspect]
     Indication: HYPERCHOLESTEROLAEMIA
     Dosage: 10-40 MG/DAILY/PO
     Route: 048
     Dates: start: 20050908, end: 20051001

REACTIONS (1)
  - RHABDOMYOLYSIS [None]
